FAERS Safety Report 23923925 (Version 2)
Quarter: 2024Q2

REPORT INFORMATION
  Report Type: Report from Study
  Country: FR (occurrence: FR)
  Receive Date: 20240531
  Receipt Date: 20240607
  Transmission Date: 20240716
  Serious: Yes (Death)
  Sender: FDA-Public Use
  Company Number: FR-BIOGEN-2023BI01217171

PATIENT
  Age: 37 Year
  Sex: Male
  Weight: 66 kg

DRUGS (2)
  1. TOFERSEN [Suspect]
     Active Substance: TOFERSEN
     Indication: Amyotrophic lateral sclerosis
     Dosage: STANDARD NEEDLE (BEVELED)
     Route: 050
     Dates: start: 20230403, end: 20230925
  2. RILUZOLE [Concomitant]
     Active Substance: RILUZOLE
     Indication: Amyotrophic lateral sclerosis
     Dosage: 100 MG/DAY
     Route: 050
     Dates: start: 20230126

REACTIONS (4)
  - Death [Fatal]
  - Meningitis [Not Recovered/Not Resolved]
  - Post lumbar puncture syndrome [Unknown]
  - Drug ineffective [Unknown]

NARRATIVE: CASE EVENT DATE: 20230101
